FAERS Safety Report 16842573 (Version 7)
Quarter: 2020Q2

REPORT INFORMATION
  Report Type: Report from Study
  Country: US (occurrence: US)
  Receive Date: 20190924
  Receipt Date: 20200430
  Transmission Date: 20200713
  Serious: No
  Sender: FDA-Public Use
  Company Number: PHEH2019US039141

PATIENT
  Age: 57 Year
  Sex: Female

DRUGS (4)
  1. MAYZENT [Suspect]
     Active Substance: SIPONIMOD
     Indication: SECONDARY PROGRESSIVE MULTIPLE SCLEROSIS
     Dosage: 1 MG, QD
     Route: 048
     Dates: start: 20190804
  2. MAYZENT [Suspect]
     Active Substance: SIPONIMOD
     Route: 048
  3. MAYZENT [Suspect]
     Active Substance: SIPONIMOD
     Dosage: 1 MG
     Route: 048
     Dates: end: 20200331
  4. VITAMIN B12 [Concomitant]
     Active Substance: CYANOCOBALAMIN
     Indication: PRODUCT USED FOR UNKNOWN INDICATION
     Dosage: 1000 UG, QD
     Route: 065

REACTIONS (23)
  - Dysphonia [Unknown]
  - Red cell distribution width increased [Recovered/Resolved]
  - Basophil count increased [Unknown]
  - Immunoglobulins increased [Recovering/Resolving]
  - Headache [Unknown]
  - Blood folate increased [Unknown]
  - Dizziness [Unknown]
  - Mean cell haemoglobin concentration decreased [Recovered/Resolved]
  - Fall [Unknown]
  - Asthenia [Unknown]
  - Tremor [Unknown]
  - Blood urea nitrogen/creatinine ratio increased [Unknown]
  - Speech disorder [Not Recovered/Not Resolved]
  - Red blood cell count decreased [Unknown]
  - Gait disturbance [Unknown]
  - Wrist fracture [Unknown]
  - Eosinophil count increased [Recovering/Resolving]
  - Muscle spasms [Not Recovered/Not Resolved]
  - Logorrhoea [Unknown]
  - Mean platelet volume decreased [Recovering/Resolving]
  - Reticulocyte count increased [Recovered/Resolved]
  - Screaming [Unknown]
  - Lymphocyte count decreased [Not Recovered/Not Resolved]

NARRATIVE: CASE EVENT DATE: 20190808
